FAERS Safety Report 10346795 (Version 2)
Quarter: 2025Q3

REPORT INFORMATION
  Report Type: Spontaneous
  Country: EU (occurrence: EU)
  Receive Date: 20140729
  Receipt Date: 20250814
  Transmission Date: 20251020
  Serious: Yes (Death)
  Sender: MERCK SHARP & DOHME LLC
  Company Number: EU-MERCK-1407ITA009594

PATIENT
  Age: 74 Year
  Sex: Male

DRUGS (1)
  1. CASPOFUNGIN [Suspect]
     Active Substance: CASPOFUNGIN
     Indication: Systemic candida
     Dosage: DOSE DESCRIPTION : 50MG/DAY?DAILY DOSE : 50 MILLIGRAM

REACTIONS (1)
  - Drug ineffective [Fatal]
